FAERS Safety Report 6049535-9 (Version None)
Quarter: 2009Q1

REPORT INFORMATION
  Report Type: 
  Country: None (occurrence: None)
  Receive Date: 20090121
  Receipt Date: 20090107
  Transmission Date: 20090719
  Serious: Yes (Hospitalization)
  Sender: FDA-Public Use
  Company Number: 005247

PATIENT
  Age: 80 Year
  Sex: Male
  Weight: 33.8 kg

DRUGS (10)
  1. PLETAL [Suspect]
     Indication: ARTERIAL STENOSIS
     Dosage: 50 MG, BID; ORAL
     Route: 048
     Dates: end: 20080706
  2. PLETAL [Suspect]
     Indication: ARTERIAL STENT INSERTION
     Dosage: 50 MG, BID; ORAL
     Route: 048
     Dates: end: 20080706
  3. HORDAZOL (CILOSTAZOL) TABLET, 50 MG [Suspect]
     Indication: ARTERIAL STENOSIS
     Dosage: 50 MG, BID; ORAL
     Route: 048
     Dates: start: 20080706, end: 20081213
  4. HORDAZOL (CILOSTAZOL) TABLET, 50 MG [Suspect]
     Indication: ARTERIAL STENT INSERTION
     Dosage: 50 MG, BID; ORAL
     Route: 048
     Dates: start: 20080706, end: 20081213
  5. ALLOTOP (NIFEDIPINE) TABLET, 20 MG [Suspect]
     Indication: HYPERTENSION
     Dosage: 20 MG, BID; ORAL
     Route: 048
     Dates: end: 20081213
  6. LENDORMIN (BROTIZOLAM) TABLET [Concomitant]
  7. DEPAS (ETIZOLAM) TABLET [Concomitant]
  8. MARZULENE (AZULENE SULFONATE SODIUM) GRANULE [Concomitant]
  9. MAGNESIUM OXIDE (MAGNESIUM OXIDE) POWDER [Concomitant]
  10. PANTOSIN (PANTETHINE) POWDER [Concomitant]

REACTIONS (1)
  - AGRANULOCYTOSIS [None]
